FAERS Safety Report 6562191-6 (Version None)
Quarter: 2010Q1

REPORT INFORMATION
  Report Type: 
  Country: None (occurrence: None)
  Receive Date: 20100130
  Receipt Date: 20091105
  Transmission Date: 20100710
  Serious: No
  Sender: FDA-Public Use
  Company Number: US-ABBOTT-09P-163-0607498-00

PATIENT
  Sex: Female

DRUGS (1)
  1. HUMIRA [Suspect]
     Indication: RHEUMATOID ARTHRITIS
     Route: 058
     Dates: start: 20060101, end: 20090401

REACTIONS (11)
  - ABNORMAL SENSATION IN EYE [None]
  - BENIGN INTRACRANIAL HYPERTENSION [None]
  - CEREBROSPINAL FLUID RETENTION [None]
  - DIPLOPIA [None]
  - DIZZINESS [None]
  - HEADACHE [None]
  - INFECTION [None]
  - PAPILLOEDEMA [None]
  - TYMPANIC MEMBRANE DISORDER [None]
  - VISION BLURRED [None]
  - WEIGHT INCREASED [None]
